FAERS Safety Report 6531301-9 (Version None)
Quarter: 2010Q1

REPORT INFORMATION
  Report Type: 
  Country: None (occurrence: None)
  Receive Date: 20100108
  Receipt Date: 20100105
  Transmission Date: 20100710
  Serious: Yes (Death, Life-Threatening, Hospitalization)
  Sender: FDA-Public Use
  Company Number: GB-JNJFOC-20070504619

PATIENT
  Sex: Female
  Weight: 48.2 kg

DRUGS (4)
  1. INFLIXIMAB [Suspect]
     Indication: CROHN'S DISEASE
     Route: 042
  2. PENTASA [Concomitant]
     Indication: CROHN'S DISEASE
  3. AZATHIOPRINE [Concomitant]
     Indication: CROHN'S DISEASE
  4. PREDNISOLONE [Concomitant]
     Indication: CROHN'S DISEASE

REACTIONS (2)
  - SMALL INTESTINE CARCINOMA [None]
  - TYPE IV HYPERSENSITIVITY REACTION [None]
